FAERS Safety Report 25066006 (Version 1)
Quarter: 2025Q1

REPORT INFORMATION
  Report Type: Report from Study
  Country: US (occurrence: US)
  Receive Date: 20250312
  Receipt Date: 20250312
  Transmission Date: 20250408
  Serious: Yes (Other)
  Sender: ABBVIE
  Company Number: US-ABBVIE-6165225

PATIENT
  Sex: Male

DRUGS (1)
  1. RINVOQ [Suspect]
     Active Substance: UPADACITINIB
     Indication: Rheumatoid arthritis
     Route: 048
     Dates: start: 20211220

REACTIONS (5)
  - Urinary tract infection [Recovering/Resolving]
  - Head injury [Unknown]
  - Pain [Recovering/Resolving]
  - Arthritis [Unknown]
  - Memory impairment [Unknown]
